FAERS Safety Report 9879745 (Version 1)
Quarter: 2014Q1

REPORT INFORMATION
  Report Type: Spontaneous
  Country: US (occurrence: US)
  Receive Date: 20140206
  Receipt Date: 20140206
  Transmission Date: 20141002
  Serious: No
  Sender: FDA-Public Use
  Company Number: US-GILEAD-2014-0093777

PATIENT
  Age: 64 Year
  Sex: Female

DRUGS (1)
  1. COMPLERA [Suspect]
     Indication: ACQUIRED IMMUNODEFICIENCY SYNDROME
     Dosage: 525 MG, UNK
     Route: 065

REACTIONS (4)
  - Cough [Unknown]
  - Alopecia [Unknown]
  - Dizziness [Unknown]
  - Fatigue [Unknown]
